FAERS Safety Report 20113773 (Version 1)
Quarter: 2021Q4

REPORT INFORMATION
  Report Type: Spontaneous
  Country: JP (occurrence: JP)
  Receive Date: 20211125
  Receipt Date: 20211125
  Transmission Date: 20220303
  Serious: Yes (Other)
  Sender: FDA-Public Use
  Company Number: JP-NOVARTISPH-NVSC2021JP269003

PATIENT

DRUGS (1)
  1. PAZOPANIB [Suspect]
     Active Substance: PAZOPANIB
     Indication: Histiocytic sarcoma
     Dosage: UNK, UNKNOWN
     Route: 048

REACTIONS (2)
  - Sarcoma metastatic [Unknown]
  - Product use in unapproved indication [Unknown]
